FAERS Safety Report 18020218 (Version 2)
Quarter: 2021Q2

REPORT INFORMATION
  Report Type: Spontaneous
  Country: US (occurrence: US)
  Receive Date: 20200714
  Receipt Date: 20210625
  Transmission Date: 20210717
  Serious: Yes (Other)
  Sender: FDA-Public Use
  Company Number: US-GLAXOSMITHKLINE-US2020129847

PATIENT
  Sex: Female

DRUGS (28)
  1. RANITIDINE CAPSULE [Suspect]
     Active Substance: RANITIDINE
     Indication: GASTROOESOPHAGEAL REFLUX DISEASE
     Dosage: 75 MG BOTH
     Route: 065
     Dates: start: 200803, end: 200803
  2. ZANTAC [Suspect]
     Active Substance: RANITIDINE HYDROCHLORIDE
     Dosage: 300 MG, QD
     Route: 065
     Dates: start: 200803, end: 200803
  3. ZANTAC [Suspect]
     Active Substance: RANITIDINE HYDROCHLORIDE
     Dosage: 300 MG, QD
     Route: 065
     Dates: start: 200803, end: 200803
  4. RANITIDINE. [Suspect]
     Active Substance: RANITIDINE
     Indication: GASTROOESOPHAGEAL REFLUX DISEASE
     Dosage: OCCASIONAL|75 MG|BOTH
     Route: 065
     Dates: start: 200803, end: 201608
  5. ZANTAC [Suspect]
     Active Substance: RANITIDINE HYDROCHLORIDE
     Indication: GASTROOESOPHAGEAL REFLUX DISEASE
     Dosage: 75 MG BOTH
     Route: 065
     Dates: start: 200803, end: 200803
  6. ZANTAC [Suspect]
     Active Substance: RANITIDINE HYDROCHLORIDE
     Dosage: 150 MG BOTH
     Route: 065
     Dates: start: 200803, end: 200803
  7. RANITIDINE CAPSULE [Suspect]
     Active Substance: RANITIDINE
     Dosage: 300 MG, QD
     Route: 065
     Dates: start: 200803, end: 200803
  8. RANITIDINE CAPSULE [Suspect]
     Active Substance: RANITIDINE
     Dosage: 300 MG, OCCASIONAL
     Route: 065
     Dates: start: 200803, end: 201608
  9. RANITIDINE. [Suspect]
     Active Substance: RANITIDINE
     Indication: GASTROOESOPHAGEAL REFLUX DISEASE
     Dosage: OCCASIONAL|75 MG|BOTH
     Route: 065
     Dates: start: 200803, end: 201608
  10. RANITIDINE. [Suspect]
     Active Substance: RANITIDINE
     Dosage: 300 MG, OCCASIONAL
     Route: 065
     Dates: start: 200803, end: 201608
  11. ZANTAC [Suspect]
     Active Substance: RANITIDINE HYDROCHLORIDE
     Dosage: UNK
     Route: 065
  12. RANITIDINE HYDROCHLORIDE. [Suspect]
     Active Substance: RANITIDINE HYDROCHLORIDE
     Indication: GASTROOESOPHAGEAL REFLUX DISEASE
     Dosage: OCCASIONAL|BOTH
     Route: 065
     Dates: start: 200803, end: 201608
  13. ZANTAC [Suspect]
     Active Substance: RANITIDINE HYDROCHLORIDE
     Indication: GASTROOESOPHAGEAL REFLUX DISEASE
     Dosage: OCCASIONAL|BOTH
     Route: 065
     Dates: start: 200803, end: 201608
  14. ZANTAC [Suspect]
     Active Substance: RANITIDINE HYDROCHLORIDE
     Dosage: 150 MG BOTH
     Route: 065
     Dates: start: 200803, end: 200803
  15. RANITIDINE CAPSULE [Suspect]
     Active Substance: RANITIDINE
     Dosage: 150 MG BOTH
     Route: 065
     Dates: start: 200803, end: 200803
  16. RANITIDINE CAPSULE [Suspect]
     Active Substance: RANITIDINE
     Dosage: OCCASIONAL|75 MG|BOTH
     Route: 065
     Dates: start: 200803, end: 201608
  17. RANITIDINE. [Suspect]
     Active Substance: RANITIDINE
     Dosage: OCCASIONAL|150  MG|BOTH
     Route: 065
     Dates: start: 200803, end: 201608
  18. RANITIDINE. [Suspect]
     Active Substance: RANITIDINE
     Dosage: OCCASIONAL|150  MG|BOTH
     Route: 065
     Dates: start: 200803, end: 201608
  19. RANITIDINE. [Suspect]
     Active Substance: RANITIDINE
     Dosage: 300 MG, OCCASIONAL
     Route: 065
     Dates: start: 200803, end: 201608
  20. ZANTAC [Suspect]
     Active Substance: RANITIDINE HYDROCHLORIDE
     Indication: GASTROOESOPHAGEAL REFLUX DISEASE
     Dosage: 75 MG BOTH
     Route: 065
     Dates: start: 200803, end: 200803
  21. ZANTAC [Suspect]
     Active Substance: RANITIDINE HYDROCHLORIDE
     Dosage: 300 MG, QD
     Route: 065
     Dates: start: 200803, end: 200803
  22. RANITIDINE. [Suspect]
     Active Substance: RANITIDINE
     Dosage: OCCASIONAL|150  MG|BOTH
     Route: 065
     Dates: start: 200803, end: 201608
  23. RANITIDINE. [Suspect]
     Active Substance: RANITIDINE
     Dosage: UNK
     Route: 065
  24. ZANTAC [Suspect]
     Active Substance: RANITIDINE HYDROCHLORIDE
     Dosage: 150 MG BOTH
     Route: 065
     Dates: start: 200803, end: 200803
  25. RANITIDINE CAPSULE [Suspect]
     Active Substance: RANITIDINE
     Dosage: OCCASIONAL|150  MG|BOTH
     Route: 065
     Dates: start: 200803, end: 201608
  26. ZANTAC [Suspect]
     Active Substance: RANITIDINE HYDROCHLORIDE
     Indication: GASTROOESOPHAGEAL REFLUX DISEASE
     Dosage: 75 MG BOTH
     Route: 065
     Dates: start: 200803, end: 200803
  27. RANITIDINE. [Suspect]
     Active Substance: RANITIDINE
     Dosage: 300 MG, OCCASIONAL
     Route: 065
     Dates: start: 200803, end: 201608
  28. RANITIDINE. [Suspect]
     Active Substance: RANITIDINE
     Indication: GASTROOESOPHAGEAL REFLUX DISEASE
     Dosage: OCCASIONAL|75 MG|BOTH
     Route: 065
     Dates: start: 200803, end: 201608

REACTIONS (1)
  - Renal cancer [Unknown]
